FAERS Safety Report 7825983-9 (Version None)
Quarter: 2011Q4

REPORT INFORMATION
  Report Type: 
  Country: None (occurrence: None)
  Receive Date: 20111019
  Receipt Date: 20111014
  Transmission Date: 20120403
  Serious: Yes (Death)
  Sender: FDA-Public Use
  Company Number: IN-ROCHE-1005202

PATIENT
  Sex: Male

DRUGS (1)
  1. ALTEPLASE [Suspect]
     Indication: ISCHAEMIC STROKE
     Dosage: 5 MG BOLUS + 45 MG PER HOUR
     Route: 042
     Dates: start: 20111006, end: 20111006

REACTIONS (1)
  - EMBOLISM [None]
